FAERS Safety Report 9409670 (Version 2)
Quarter: 2013Q3

REPORT INFORMATION
  Report Type: Report from Study
  Country: BR (occurrence: BR)
  Receive Date: 20130719
  Receipt Date: 20130925
  Transmission Date: 20140515
  Serious: No
  Sender: FDA-Public Use
  Company Number: PHHY2013BR076555

PATIENT
  Age: 72 Year
  Sex: Female
  Weight: 53 kg

DRUGS (3)
  1. DIOVAN TRIPLE [Suspect]
     Indication: HYPERTENSION
     Dosage: 1 DF, (160MG VALS / 5 MG AMLO / 12.5MG HCTZ), DAILY
     Route: 048
     Dates: start: 201305
  2. ATENOLOL [Concomitant]
     Indication: BLOOD PRESSURE ABNORMAL
     Dosage: 50 MG, UNK
     Dates: start: 20130510
  3. PURAN T4 [Concomitant]
     Indication: THYROID DISORDER
     Dosage: 112 UG, UNK

REACTIONS (2)
  - Tendonitis [Not Recovered/Not Resolved]
  - Joint swelling [Not Recovered/Not Resolved]
